FAERS Safety Report 19453281 (Version 1)
Quarter: 2021Q2

REPORT INFORMATION
  Report Type: Spontaneous
  Country: CN (occurrence: CN)
  Receive Date: 20210623
  Receipt Date: 20210623
  Transmission Date: 20210717
  Serious: Yes (Other)
  Sender: FDA-Public Use
  Company Number: CN-ROCHE-2854621

PATIENT
  Age: 53 Year
  Sex: Female

DRUGS (5)
  1. GAMMA GLOBULIN [Concomitant]
     Active Substance: IMMUNE GLOBULIN NOS
     Indication: CHRONIC LYMPHOCYTIC LEUKAEMIA
     Route: 042
     Dates: start: 2019
  2. MABTHERA [Suspect]
     Active Substance: RITUXIMAB
     Indication: CHRONIC LYMPHOCYTIC LEUKAEMIA
     Dosage: SUBSEQUENTLY ON 17/DEC/2019, 14/JAN/2020, 14/FEB/2020, 13/MAR/2020 AND 15/APR/2020, RFC REGIMEN, ON
     Route: 065
     Dates: start: 20191121
  3. CYCLOPHOSPHAMIDE. [Concomitant]
     Active Substance: CYCLOPHOSPHAMIDE
     Indication: CHRONIC LYMPHOCYTIC LEUKAEMIA
     Dosage: SUBSEQUENTLY ON 17 DEC 2019, 14 JAN 2020, 14 FEB 2020, 13 MAR 2020 AND 15 APR 2020, RFC REGIMEN, ON
     Dates: start: 20191121
  4. FLUDARABINE [Concomitant]
     Active Substance: FLUDARABINE PHOSPHATE
     Indication: CHRONIC LYMPHOCYTIC LEUKAEMIA
     Dosage: SUBSEQUENTLY ON 17/DEC/2019, 14/JAN/2020, 14/FEB/2020, 13/MAR/2020 AND 15/APR/2020, RFC REGIMEN, ON
     Dates: start: 20191121
  5. CHLORAMBUCIL [Concomitant]
     Active Substance: CHLORAMBUCIL
     Indication: CHRONIC LYMPHOCYTIC LEUKAEMIA
     Dates: start: 201804

REACTIONS (1)
  - Myelosuppression [Unknown]

NARRATIVE: CASE EVENT DATE: 2020
